FAERS Safety Report 24748837 (Version 2)
Quarter: 2025Q1

REPORT INFORMATION
  Report Type: Spontaneous
  Country: US (occurrence: US)
  Receive Date: 20241218
  Receipt Date: 20250312
  Transmission Date: 20250409
  Serious: Yes (Hospitalization)
  Sender: BRISTOL-MYERS SQUIBB COMPANY
  Company Number: US-BRISTOL-MYERS SQUIBB COMPANY-2024-196229

PATIENT
  Age: 75 Year
  Sex: Female

DRUGS (4)
  1. SPRYCEL [Interacting]
     Active Substance: DASATINIB
     Indication: Product used for unknown indication
     Route: 048
  2. SPRYCEL [Interacting]
     Active Substance: DASATINIB
     Route: 048
  3. SPRYCEL [Interacting]
     Active Substance: DASATINIB
     Route: 048
  4. COUMADIN [Interacting]
     Active Substance: WARFARIN SODIUM
     Indication: Product used for unknown indication

REACTIONS (3)
  - Haemorrhage [Unknown]
  - Influenza [Unknown]
  - Drug interaction [Unknown]

NARRATIVE: CASE EVENT DATE: 20250303
